FAERS Safety Report 4894473-8 (Version None)
Quarter: 2006Q1

REPORT INFORMATION
  Report Type: 
  Country: None (occurrence: None)
  Receive Date: 20060118
  Receipt Date: 20060103
  Transmission Date: 20060701
  Serious: Yes (Hospitalization)
  Sender: FDA-Public Use
  Company Number: 2006-136606-NL

PATIENT
  Age: 69 Year
  Sex: Female

DRUGS (1)
  1. TICE BCG [Suspect]
     Indication: BLADDER CANCER
     Dosage: CFU INTRAVESICAL
     Route: 043

REACTIONS (7)
  - ABDOMINAL DISTENSION [None]
  - ADHESION [None]
  - ASCITES [None]
  - GRANULOMA [None]
  - OVARIAN ENLARGEMENT [None]
  - PELVIC MASS [None]
  - PERITONEAL DISORDER [None]
